FAERS Safety Report 25355403 (Version 1)
Quarter: 2025Q2

REPORT INFORMATION
  Report Type: Other
  Country: CN (occurrence: CN)
  Receive Date: 20250524
  Receipt Date: 20250524
  Transmission Date: 20250716
  Serious: Yes (Other)
  Sender: Kanchan Healthcare
  Company Number: CN-Kanchan Healthcare INC-2177416

PATIENT
  Age: 67 Year
  Sex: Female

DRUGS (8)
  1. DEXAMETHASONE [Suspect]
     Active Substance: DEXAMETHASONE
     Indication: Lung adenocarcinoma
     Dates: start: 202111
  2. OSIMERTINIB [Suspect]
     Active Substance: OSIMERTINIB
     Dates: start: 2021
  3. OLAPARIB [Suspect]
     Active Substance: OLAPARIB
     Dates: start: 2021
  4. PEMBROLIZUMAB [Suspect]
     Active Substance: PEMBROLIZUMAB
     Dates: start: 2021
  5. BEVACIZUMAB [Suspect]
     Active Substance: BEVACIZUMAB
     Dates: start: 2021
  6. PEMETREXED [Suspect]
     Active Substance: PEMETREXED
     Dates: start: 2021
  7. AUMOLERTINIB [Suspect]
     Active Substance: AUMOLERTINIB
     Dates: start: 2021
  8. CATEQUENTINIB [Suspect]
     Active Substance: CATEQUENTINIB
     Dates: start: 2021

REACTIONS (3)
  - Myelosuppression [Recovered/Resolved]
  - Product use in unapproved indication [Unknown]
  - Infection [Recovered/Resolved]
